FAERS Safety Report 13159516 (Version 3)
Quarter: 2018Q4

REPORT INFORMATION
  Report Type: Report from Study
  Country: US (occurrence: US)
  Receive Date: 20170127
  Receipt Date: 20181119
  Transmission Date: 20190204
  Serious: Yes (Hospitalization)
  Sender: FDA-Public Use
  Company Number: US-JNJFOC-20150824247

PATIENT
  Age: 66 Year
  Sex: Male

DRUGS (32)
  1. IMBRUVICA [Suspect]
     Active Substance: IBRUTINIB
     Indication: CHRONIC LYMPHOCYTIC LEUKAEMIA
     Route: 048
     Dates: start: 20150730
  2. IMBRUVICA [Suspect]
     Active Substance: IBRUTINIB
     Indication: CHRONIC LYMPHOCYTIC LEUKAEMIA
     Route: 048
     Dates: start: 2015, end: 2015
  3. ALLOPURINOL. [Concomitant]
     Active Substance: ALLOPURINOL
  4. FUROSEMIDE. [Concomitant]
     Active Substance: FUROSEMIDE
  5. VICTOZA [Concomitant]
     Active Substance: LIRAGLUTIDE
  6. CLOPIDOGREL [Concomitant]
     Active Substance: CLOPIDOGREL BISULFATE
  7. METOPROLOL TARTRATE. [Concomitant]
     Active Substance: METOPROLOL TARTRATE
  8. TRAMADOL. [Concomitant]
     Active Substance: TRAMADOL
  9. GABAPENTIN. [Concomitant]
     Active Substance: GABAPENTIN
  10. CARVEDILOL. [Concomitant]
     Active Substance: CARVEDILOL
  11. PRAVASTATIN. [Concomitant]
     Active Substance: PRAVASTATIN
  12. ISOSORBIDE MONONITRATE. [Concomitant]
     Active Substance: ISOSORBIDE MONONITRATE
  13. KETOCO [Concomitant]
  14. IMBRUVICA [Suspect]
     Active Substance: IBRUTINIB
     Indication: CHRONIC LYMPHOCYTIC LEUKAEMIA
     Route: 048
     Dates: start: 20151119
  15. WARFARIN [Concomitant]
     Active Substance: WARFARIN
  16. IMBRUVICA [Suspect]
     Active Substance: IBRUTINIB
     Indication: CHRONIC LYMPHOCYTIC LEUKAEMIA
     Route: 048
     Dates: start: 2015, end: 2015
  17. LISINOPRIL. [Concomitant]
     Active Substance: LISINOPRIL
  18. FLOUROURACIL [Concomitant]
     Active Substance: FLUOROURACIL
  19. POTASSIUM [Concomitant]
     Active Substance: POTASSIUM
  20. OMEPRAZOLE. [Concomitant]
     Active Substance: OMEPRAZOLE
  21. CYANOCOBALAMIN. [Concomitant]
     Active Substance: CYANOCOBALAMIN
  22. IMBRUVICA [Suspect]
     Active Substance: IBRUTINIB
     Indication: CHRONIC LYMPHOCYTIC LEUKAEMIA
     Route: 048
     Dates: start: 20150711
  23. ASPIRIN. [Concomitant]
     Active Substance: ASPIRIN
  24. NORCO [Concomitant]
     Active Substance: ACETAMINOPHEN\HYDROCODONE BITARTRATE
  25. TAMSULOSIN HYDROCHLORIDE. [Concomitant]
     Active Substance: TAMSULOSIN HYDROCHLORIDE
  26. ATORVASTATIN [Concomitant]
     Active Substance: ATORVASTATIN
  27. LYRICA [Concomitant]
     Active Substance: PREGABALIN
  28. LEVOTHYROXINE. [Concomitant]
     Active Substance: LEVOTHYROXINE
  29. FISH OIL [Concomitant]
     Active Substance: FISH OIL
  30. VITAMIN D [Concomitant]
     Active Substance: CHOLECALCIFEROL
  31. FENOFIBRATE. [Concomitant]
     Active Substance: FENOFIBRATE
  32. HUMULIN NOS [Concomitant]
     Active Substance: INSULIN HUMAN

REACTIONS (12)
  - Kidney infection [Unknown]
  - Pyrexia [Not Recovered/Not Resolved]
  - Pleural effusion [Not Recovered/Not Resolved]
  - Lung disorder [Unknown]
  - Renal failure [Recovering/Resolving]
  - Immune system disorder [Unknown]
  - Gastric disorder [Unknown]
  - Pericardial effusion [Not Recovered/Not Resolved]
  - Nasal congestion [Not Recovered/Not Resolved]
  - Cardiac failure congestive [Not Recovered/Not Resolved]
  - Throat irritation [Not Recovered/Not Resolved]
  - Dyspnoea [Unknown]

NARRATIVE: CASE EVENT DATE: 2015
